FAERS Safety Report 6479828-2 (Version None)
Quarter: 2009Q4

REPORT INFORMATION
  Report Type: 
  Country: None (occurrence: None)
  Receive Date: 20091208
  Receipt Date: 20091127
  Transmission Date: 20100525
  Serious: Yes (Other)
  Sender: FDA-Public Use
  Company Number: US-ROCHE-664169

PATIENT
  Sex: Female
  Weight: 102.9 kg

DRUGS (1)
  1. TAMIFLU [Suspect]
     Indication: H1N1 INFLUENZA
     Dosage: DOSE: 1 X BID, FOR 5 DAYS
     Route: 048
     Dates: start: 20091006, end: 20091012

REACTIONS (1)
  - ABORTION MISSED [None]
